FAERS Safety Report 14649034 (Version 1)
Quarter: 2018Q1

REPORT INFORMATION
  Report Type: Spontaneous
  Country: SE (occurrence: SE)
  Receive Date: 20180316
  Receipt Date: 20180316
  Transmission Date: 20180509
  Serious: Yes (Hospitalization)
  Sender: FDA-Public Use
  Company Number: SE-TEVA-2018-SE-869097

PATIENT
  Age: 42 Year
  Sex: Male

DRUGS (7)
  1. ZOPICLONE [Concomitant]
     Active Substance: ZOPICLONE
  2. GABAPENTIN. [Concomitant]
     Active Substance: GABAPENTIN
  3. SERTRALINE [Concomitant]
     Active Substance: SERTRALINE HYDROCHLORIDE
  4. PANODIL [Concomitant]
     Active Substance: ACETAMINOPHEN
  5. ENALAPRIL [Concomitant]
     Active Substance: ENALAPRIL
  6. LEVETIRACETAM. [Suspect]
     Active Substance: LEVETIRACETAM
     Indication: EPILEPSY
     Dosage: ^2.5X2^
     Route: 048
  7. LEVETIRACETAM. [Suspect]
     Active Substance: LEVETIRACETAM
     Dosage: ^2000 MG/DYGN^

REACTIONS (1)
  - Personality change [Recovered/Resolved with Sequelae]
